FAERS Safety Report 6417287-6 (Version None)
Quarter: 2009Q4

REPORT INFORMATION
  Report Type: 
  Country: None (occurrence: None)
  Receive Date: 20091028
  Receipt Date: 20091015
  Transmission Date: 20100525
  Serious: Yes (Hospitalization, Other)
  Sender: FDA-Public Use
  Company Number: PHHY2009DE44950

PATIENT
  Age: 67 Year
  Sex: Female
  Weight: 76 kg

DRUGS (11)
  1. SANDIMMUNE [Suspect]
     Indication: RENAL TRANSPLANT
     Dosage: 125 MG AM, 100 MG PM
     Route: 048
     Dates: start: 19940101, end: 20090901
  2. SANDIMMUNE [Suspect]
     Dosage: 100 MG AM, 75 MG PM
     Route: 048
     Dates: start: 20090902
  3. IMUREK [Suspect]
     Indication: RENAL TRANSPLANT
     Dosage: 25 MG, QD
     Route: 048
     Dates: start: 19940101
  4. ATACAND [Concomitant]
     Indication: HYPERTENSION
     Dosage: 8 MG, QD
     Route: 048
     Dates: start: 20000101
  5. BENZBROMARONE [Concomitant]
     Indication: HYPERURICAEMIA
     Dosage: 100 MG, QD
     Route: 048
     Dates: end: 20090902
  6. BONDIOL [Concomitant]
     Indication: OSTEOPOROSIS PROPHYLAXIS
     Dosage: 0.25 UG, BID
     Route: 048
     Dates: start: 20000101
  7. DILTIAZEM [Concomitant]
     Indication: HYPERTENSION
     Dosage: 60 MG, QD
     Route: 048
     Dates: start: 19940101
  8. FOLSAN [Concomitant]
     Indication: ANAEMIA
     Dosage: 5 MG, BID
     Route: 048
  9. CINACALCET [Concomitant]
     Indication: HYPERPARATHYROIDISM
     Dosage: 30 MG, QD
     Route: 048
     Dates: start: 20090101
  10. RENAGEL [Concomitant]
     Indication: HYPERPHOSPHATAEMIA
     Dosage: 1-2-1
     Route: 048
     Dates: start: 20090101
  11. TORSEMIDE [Concomitant]
     Indication: HYPERTENSION
     Dosage: 50-25-0
     Route: 048
     Dates: start: 19940101

REACTIONS (15)
  - ASTHENIA [None]
  - BLOOD CREATININE INCREASED [None]
  - BRONCHITIS [None]
  - ERYSIPELAS [None]
  - INFECTION [None]
  - INFLAMMATION [None]
  - KIDNEY FIBROSIS [None]
  - KIDNEY TRANSPLANT REJECTION [None]
  - LUNG INFILTRATION [None]
  - METABOLIC ACIDOSIS [None]
  - OEDEMA PERIPHERAL [None]
  - PULMONARY FIBROSIS [None]
  - RENAL IMPAIRMENT [None]
  - RENAL TUBULAR ATROPHY [None]
  - SKIN ULCER [None]
